FAERS Safety Report 13468317 (Version 1)
Quarter: 2017Q2

REPORT INFORMATION
  Report Type: Spontaneous
  Country: US (occurrence: US)
  Receive Date: 20170421
  Receipt Date: 20170421
  Transmission Date: 20170830
  Serious: No
  Sender: FDA-Public Use
  Company Number: US-FRESENIUS KABI-FK201703293

PATIENT
  Age: 56 Year
  Sex: Male

DRUGS (1)
  1. NAROPIN [Suspect]
     Active Substance: ROPIVACAINE HYDROCHLORIDE
     Indication: ROTATOR CUFF REPAIR
     Route: 065
     Dates: start: 20170323, end: 20170326

REACTIONS (6)
  - Urticaria [Not Recovered/Not Resolved]
  - Skin injury [Recovering/Resolving]
  - Pruritus [Not Recovered/Not Resolved]
  - Drug administration error [Not Recovered/Not Resolved]
  - Product leakage [Recovering/Resolving]
  - Burns second degree [Recovering/Resolving]
